FAERS Safety Report 10862957 (Version 1)
Quarter: 2015Q1

REPORT INFORMATION
  Report Type: Spontaneous
  Country: US (occurrence: US)
  Receive Date: 20150224
  Receipt Date: 20150224
  Transmission Date: 20150721
  Serious: No
  Sender: FDA-Public Use
  Company Number: US-BAUSCH-BL-2014-004140

PATIENT
  Age: 66 Year
  Sex: Female
  Weight: 90.8 kg

DRUGS (1)
  1. NEOMYCIN AND POLYMYXIN B SULFATES AND HYDROCORTISONE [Suspect]
     Active Substance: HYDROCORTISONE\NEOMYCIN SULFATE\POLYMYXIN B SULFATE
     Indication: NAIL BED DISORDER
     Dosage: APPLY TO NAIL BED ON BIG TOES
     Route: 061
     Dates: start: 20140815, end: 20140815

REACTIONS (5)
  - Off label use [Recovered/Resolved]
  - Hypersensitivity [Unknown]
  - Drug ineffective [Unknown]
  - Nausea [Recovered/Resolved]
  - Rash [Recovering/Resolving]

NARRATIVE: CASE EVENT DATE: 20140815
